FAERS Safety Report 21368682 (Version 7)
Quarter: 2024Q2

REPORT INFORMATION
  Report Type: Other
  Country: DE (occurrence: None)
  Receive Date: 20220923
  Receipt Date: 20240506
  Transmission Date: 20240715
  Serious: Yes (Hospitalization, Other)
  Sender: FDA-Public Use
  Company Number: DE-ROCHE-2302014

PATIENT
  Age: 48 Year
  Sex: Female

DRUGS (6)
  1. OCREVUS [Suspect]
     Active Substance: OCRELIZUMAB
     Indication: Relapsing-remitting multiple sclerosis
     Dosage: 600 MG FREQUENCY: 188 DAYS
     Route: 042
     Dates: start: 20181219, end: 20220905
  2. LEVOTHYROXINE SODIUM [Concomitant]
     Active Substance: LEVOTHYROXINE SODIUM
  3. ASPIRIN [Concomitant]
     Active Substance: ASPIRIN
  4. SIMVASTATIN [Concomitant]
     Active Substance: SIMVASTATIN
  5. KEPPRA [Concomitant]
     Active Substance: LEVETIRACETAM
  6. CHOLECALCIFEROL [Concomitant]
     Active Substance: CHOLECALCIFEROL

REACTIONS (11)
  - Multiple sclerosis [Not Recovered/Not Resolved]
  - Breast cancer [Not Recovered/Not Resolved]
  - Dizziness [Recovered/Resolved]
  - Lymphocyte count decreased [Recovered/Resolved]
  - Iron deficiency anaemia [Recovered/Resolved]
  - Fatigue [Recovered/Resolved]
  - COVID-19 [Recovered/Resolved]
  - Benign breast neoplasm [Unknown]
  - Alopecia [Recovered/Resolved]
  - Fatigue [Not Recovered/Not Resolved]
  - Radiation associated pain [Recovered/Resolved]

NARRATIVE: CASE EVENT DATE: 20190320
